FAERS Safety Report 10445510 (Version 2)
Quarter: 2014Q3

REPORT INFORMATION
  Report Type: Spontaneous
  Country: FR (occurrence: FR)
  Receive Date: 20140910
  Receipt Date: 20140917
  Transmission Date: 20150326
  Serious: Yes (Other)
  Sender: FDA-Public Use
  Company Number: FR-ABBVIE-14K-056-1279564-00

PATIENT
  Age: 41 Year
  Sex: Female
  Weight: 97 kg

DRUGS (4)
  1. HUMIRA [Suspect]
     Active Substance: ADALIMUMAB
     Dosage: WEEK 4
  2. HUMIRA [Suspect]
     Active Substance: ADALIMUMAB
     Dosage: WEEK 2
  3. HUMIRA [Suspect]
     Active Substance: ADALIMUMAB
     Indication: CROHN^S DISEASE
     Dosage: DAY 0 LOADING DOSE
     Dates: start: 2010, end: 2010
  4. HUMIRA [Suspect]
     Active Substance: ADALIMUMAB
     Route: 058

REACTIONS (13)
  - Hepatocellular injury [Recovered/Resolved]
  - Hepatic fibrosis [Unknown]
  - C-reactive protein increased [Unknown]
  - Drug effect decreased [Unknown]
  - Hepatitis [Unknown]
  - Transaminases abnormal [Recovered/Resolved]
  - Colitis erosive [Unknown]
  - Biopsy liver [Unknown]
  - Transaminases increased [Unknown]
  - Intestinal transit time increased [Unknown]
  - Hepatic steatosis [Unknown]
  - Colitis ulcerative [Unknown]
  - Smooth muscle antibody positive [Unknown]

NARRATIVE: CASE EVENT DATE: 2011
